FAERS Safety Report 19576796 (Version 2)
Quarter: 2021Q3

REPORT INFORMATION
  Report Type: Report from Study
  Country: DE (occurrence: DE)
  Receive Date: 20210719
  Receipt Date: 20210827
  Transmission Date: 20211014
  Serious: Yes (Hospitalization, Other)
  Sender: FDA-Public Use
  Company Number: DE-TAKEDA-2021TUS044630

PATIENT
  Sex: Female
  Weight: 52 kg

DRUGS (6)
  1. SALOFALK [Concomitant]
     Dosage: 1 GRAM, QD
     Dates: start: 20201030, end: 20210707
  2. VEDOLIZUMAB [Suspect]
     Active Substance: VEDOLIZUMAB
     Dosage: 300 MILLIGRAM
     Route: 042
     Dates: start: 20210722
  3. PREDNISOLONE. [Concomitant]
     Active Substance: PREDNISOLONE
     Indication: COLITIS ULCERATIVE
     Dosage: 40 MILLIGRAM
     Dates: start: 20210702
  4. VEDOLIZUMAB [Suspect]
     Active Substance: VEDOLIZUMAB
     Indication: COLITIS ULCERATIVE
     Dosage: 300 MILLIGRAM
     Route: 042
     Dates: start: 20210624
  5. PREDNISOLONE. [Concomitant]
     Active Substance: PREDNISOLONE
     Dosage: 40 MILLIGRAM, QD
     Dates: start: 20210802
  6. SALOFALK [Concomitant]
     Dosage: 3 GRAM, QD
     Dates: start: 20200428

REACTIONS (2)
  - Pancreatic enzymes increased [Unknown]
  - Colitis ulcerative [Not Recovered/Not Resolved]

NARRATIVE: CASE EVENT DATE: 20210625
